FAERS Safety Report 10555298 (Version 2)
Quarter: 2014Q4

REPORT INFORMATION
  Report Type: Spontaneous
  Country: US (occurrence: CA)
  Receive Date: 20141030
  Receipt Date: 20141113
  Transmission Date: 20150529
  Serious: Yes (Death, Hospitalization)
  Sender: FDA-Public Use
  Company Number: CA-CELGENE-CAN-2014103898

PATIENT
  Age: 69 Year
  Sex: Male
  Weight: 94.2 kg

DRUGS (7)
  1. FRAGMIN [Concomitant]
     Active Substance: DALTEPARIN SODIUM
     Dosage: 1250 UNITS
     Route: 065
     Dates: end: 201410
  2. METFORMIN [Concomitant]
     Active Substance: METFORMIN HYDROCHLORIDE
     Route: 065
  3. SENECOT [Concomitant]
     Route: 065
  4. ROSUVASTATIN [Concomitant]
     Active Substance: ROSUVASTATIN
     Route: 065
  5. LUCERTIN [Concomitant]
     Route: 065
  6. HYDROMORPHONE [Concomitant]
     Active Substance: HYDROMORPHONE
     Dosage: PUMP
     Route: 065
  7. ABRAXANE [Suspect]
     Active Substance: PACLITAXEL
     Indication: PANCREATIC CARCINOMA METASTATIC
     Route: 041
     Dates: start: 20140926, end: 20140926

REACTIONS (5)
  - Loss of consciousness [Unknown]
  - Death [Fatal]
  - Renal failure [Unknown]
  - Infection [Unknown]
  - Spleen disorder [Unknown]

NARRATIVE: CASE EVENT DATE: 20141003
